FAERS Safety Report 7053787-6 (Version None)
Quarter: 2010Q4

REPORT INFORMATION
  Report Type: 
  Country: None (occurrence: None)
  Receive Date: 20101020
  Receipt Date: 20101010
  Transmission Date: 20110411
  Serious: Yes (Other)
  Sender: FDA-Public Use
  Company Number: B0679880A

PATIENT
  Sex: Female
  Weight: 23 kg

DRUGS (14)
  1. RELENZA [Suspect]
     Dosage: 10MG TWICE PER DAY
     Route: 055
     Dates: start: 20100927
  2. ZANAMIVIR [Suspect]
     Dosage: 600MG SINGLE DOSE
     Route: 042
  3. TAMIFLU [Concomitant]
     Dates: start: 20100919, end: 20101002
  4. TAZOCIN [Concomitant]
     Dates: start: 20100919, end: 20101001
  5. ISONIAZID [Concomitant]
     Dates: start: 20100927
  6. RIFAMPICIN [Concomitant]
     Dates: start: 20100927
  7. PYRAZINAMIDE [Concomitant]
     Dates: start: 20100927
  8. ETHAMBUTOL HYDROCHLORIDE [Concomitant]
     Dates: start: 20100927
  9. EXELON [Concomitant]
     Dates: start: 20100920
  10. BACLOFEN [Concomitant]
     Dates: start: 20100920
  11. NAC LONG [Concomitant]
     Dates: start: 20100910
  12. FOLIC [Concomitant]
     Dates: start: 20100921
  13. BERODUAL FORTE [Concomitant]
     Dates: start: 20100920
  14. FLIXOTIDE [Concomitant]
     Dates: start: 20100920, end: 20101003

REACTIONS (1)
  - CONVULSION [None]
